FAERS Safety Report 5220921-X (Version None)
Quarter: 2007Q1

REPORT INFORMATION
  Report Type: 
  Country: None (occurrence: None)
  Receive Date: 20070125
  Receipt Date: 20070125
  Transmission Date: 20070707
  Serious: Yes (Hospitalization)
  Sender: FDA-Public Use
  Company Number: None

PATIENT
  Sex: Female
  Weight: 77.1115 kg

DRUGS (3)
  1. LOTREL [Suspect]
     Indication: HYPERTENSION
     Dosage: 5/20MG PO QD PRIOR TO ADMISSION
     Route: 048
  2. ISONIAZID [Concomitant]
  3. DEPO SHOT [Concomitant]

REACTIONS (3)
  - ABDOMINAL DISTENSION [None]
  - HEADACHE [None]
  - OEDEMA PERIPHERAL [None]
